FAERS Safety Report 5334642-6 (Version None)
Quarter: 2007Q2

REPORT INFORMATION
  Report Type: 
  Country: None (occurrence: None)
  Receive Date: 20070525
  Receipt Date: 20070521
  Transmission Date: 20071010
  Serious: Yes (Life-Threatening, Hospitalization)
  Sender: FDA-Public Use
  Company Number: B0424651A

PATIENT
  Age: 57 Year
  Sex: Male
  Weight: 39 kg

DRUGS (11)
  1. VALTREX [Suspect]
     Indication: HERPES ZOSTER
     Dosage: 500MG THREE TIMES PER DAY
     Route: 048
     Dates: start: 20060508, end: 20060513
  2. HERBESSER [Concomitant]
     Indication: ATRIAL FIBRILLATION
     Dosage: 30MG THREE TIMES PER DAY
     Route: 048
     Dates: start: 20060502
  3. VASOLAN [Concomitant]
     Dosage: 3 PER DAY
     Route: 048
  4. CALTAN [Concomitant]
     Dosage: 1UNIT TWICE PER DAY
     Route: 048
  5. NITOROL R [Concomitant]
     Dosage: 1CAP TWICE PER DAY
     Route: 048
  6. VENCOLL [Concomitant]
     Dosage: 2 PER DAY
     Route: 048
  7. RENAGEL [Concomitant]
     Dosage: 2TAB TWICE PER DAY
     Route: 048
  8. FAMOTIDINE [Concomitant]
     Indication: GASTRITIS
     Dosage: 10MG PER DAY
     Route: 048
  9. WARFARIN SODIUM [Concomitant]
     Indication: ATRIAL FIBRILLATION
     Dosage: 1TAB PER DAY
     Route: 048
     Dates: start: 20060509
  10. BRUFEN [Concomitant]
     Indication: PAIN
     Dosage: 200MG PER DAY
     Route: 048
     Dates: start: 20060508, end: 20060518
  11. DIGOXIN SEMI [Concomitant]
     Indication: ATRIAL FIBRILLATION
     Route: 048
     Dates: start: 20060501

REACTIONS (12)
  - ALTERED STATE OF CONSCIOUSNESS [None]
  - APHONIA [None]
  - ASTHENIA [None]
  - DECREASED ACTIVITY [None]
  - DECREASED APPETITE [None]
  - DYSARTHRIA [None]
  - DYSGRAPHIA [None]
  - DYSKINESIA [None]
  - HYPOAESTHESIA [None]
  - MALAISE [None]
  - TREMOR [None]
  - WEIGHT DECREASED [None]
